FAERS Safety Report 12403984 (Version 1)
Quarter: 2016Q2

REPORT INFORMATION
  Report Type: Spontaneous
  Country: US (occurrence: US)
  Receive Date: 20160525
  Receipt Date: 20160525
  Transmission Date: 20160815
  Serious: No
  Sender: FDA-Public Use
  Company Number: US-GLAXOSMITHKLINE-US2016GSK074180

PATIENT
  Sex: Female

DRUGS (2)
  1. BUPROPION HYDROCHLORIDE TABLET [Suspect]
     Active Substance: BUPROPION HYDROCHLORIDE
     Indication: SEASONAL AFFECTIVE DISORDER
     Dosage: 300 MG, UNK
     Dates: start: 201502
  2. WELLBUTRIN SR [Suspect]
     Active Substance: BUPROPION HYDROCHLORIDE
     Indication: SEASONAL AFFECTIVE DISORDER
     Dosage: 150 MG, UNK

REACTIONS (4)
  - Blood pressure abnormal [Unknown]
  - Off label use [Unknown]
  - Drug ineffective [Recovered/Resolved]
  - Cardiac disorder [Unknown]
